FAERS Safety Report 9077376 (Version 1)
Quarter: 2013Q1

REPORT INFORMATION
  Report Type: Spontaneous
  Country: US (occurrence: US)
  Receive Date: 20130129
  Receipt Date: 20130129
  Transmission Date: 20140127
  Serious: No
  Sender: FDA-Public Use
  Company Number: US-ABBOTT-12P-163-0945745-00

PATIENT
  Age: 70 Year
  Sex: Male
  Weight: 88.53 kg

DRUGS (3)
  1. HUMIRA 40 MG/0.8 ML PEN [Suspect]
     Indication: WRONG DRUG ADMINISTERED
     Dates: start: 20120604, end: 20120604
  2. UNKNOWN BLOOD PRESSURE MEDICATIONS [Concomitant]
     Indication: BLOOD PRESSURE
  3. ACTOS [Concomitant]
     Indication: DIABETES MELLITUS

REACTIONS (4)
  - Incorrect route of drug administration [Recovered/Resolved]
  - Pain [Recovered/Resolved]
  - Wrong technique in drug usage process [Unknown]
  - Injury associated with device [Not Recovered/Not Resolved]
